FAERS Safety Report 6967600 (Version 2)
Quarter: 2012Q4

REPORT INFORMATION
  Report Type: 
  Country: US (occurrence: US)
  Receive Date: 20090413
  Receipt Date: 20120912
  Transmission Date: 20130627
  Serious: No
  Sender: FDA-Public Use
  Company Number: US-B.I. PHARMACEUTICALS,INC./RIDGEFIELD-2009-BP-04449BP

PATIENT
  Age: 68 Year
  Sex: Female

DRUGS (12)
  1. SPIRIVA HANDIHALER [Suspect]
     Indication: ASTHMA
     Dosage: 18 mcg
     Route: 055
     Dates: start: 2007
  2. ALLEGRA [Concomitant]
     Indication: SEASONAL ALLERGY
     Dosage: 180 mg
     Route: 048
  3. MEVACOR [Concomitant]
     Indication: HYPERTENSION
     Route: 048
  4. LABETALOL [Concomitant]
     Indication: HYPERTENSION
     Route: 048
  5. COZAAR [Concomitant]
     Indication: HYPERTENSION
     Route: 048
  6. SINGULAIR [Concomitant]
     Indication: ASTHMA
     Dosage: 10 mg
     Route: 048
  7. PULMICORT [Concomitant]
     Indication: ASTHMA
  8. ZETIA [Concomitant]
     Indication: BLOOD CHOLESTEROL INCREASED
     Route: 048
  9. NEURONTIN [Concomitant]
     Route: 048
  10. DIFLUCAN [Concomitant]
     Route: 048
  11. XANAX [Concomitant]
     Indication: ANXIETY
     Route: 048
  12. PROTONIX [Concomitant]
     Indication: GASTROOESOPHAGEAL REFLUX DISEASE
     Route: 048

REACTIONS (3)
  - Urinary tract infection [Not Recovered/Not Resolved]
  - Drug ineffective [Unknown]
  - Product quality issue [Unknown]
